FAERS Safety Report 19985531 (Version 4)
Quarter: 2021Q4

REPORT INFORMATION
  Report Type: Report from Study
  Country: US (occurrence: US)
  Receive Date: 20211021
  Receipt Date: 20211126
  Transmission Date: 20220303
  Serious: Yes (Life-Threatening, Hospitalization, Other)
  Sender: FDA-Public Use
  Company Number: US-GILEAD-2021-0553562

PATIENT
  Age: 73 Year
  Sex: Female
  Weight: 92.063 kg

DRUGS (15)
  1. AMBRISENTAN [Suspect]
     Active Substance: AMBRISENTAN
     Indication: Pulmonary arterial hypertension
     Dosage: 10 MG, QD
     Route: 048
     Dates: start: 20190912
  2. ELIQUIS [Concomitant]
     Active Substance: APIXABAN
  3. FUROSEMIDE\POTASSIUM CHLORIDE [Concomitant]
     Active Substance: FUROSEMIDE\POTASSIUM CHLORIDE
  4. PROVENTIL HFA [Concomitant]
     Active Substance: ALBUTEROL SULFATE
  5. SOTALOL-BC [Concomitant]
  6. BREO ELLIPTA [Concomitant]
     Active Substance: FLUTICASONE FUROATE\VILANTEROL TRIFENATATE
  7. LEVALBUTEROL HYDROCHLORIDE [Concomitant]
     Active Substance: LEVALBUTEROL HYDROCHLORIDE
  8. VITAMIN B12 [Concomitant]
     Active Substance: CYANOCOBALAMIN
  9. FOLIC ACID [Concomitant]
     Active Substance: FOLIC ACID
  10. PANTOPRAZOLE SODIUM [Concomitant]
     Active Substance: PANTOPRAZOLE SODIUM
  11. AZELASTINE [Concomitant]
     Active Substance: AZELASTINE
  12. FLUTICASONE [Concomitant]
     Active Substance: FLUTICASONE
  13. PREMARIN MPA [Concomitant]
  14. PREDNISONE [Concomitant]
     Active Substance: PREDNISONE
  15. SOLU-MEDROL [Concomitant]
     Active Substance: METHYLPREDNISOLONE SODIUM SUCCINATE

REACTIONS (5)
  - Ileus [Unknown]
  - Gastrointestinal disorder [Recovered/Resolved]
  - Atrial fibrillation [Recovered/Resolved]
  - Condition aggravated [Unknown]
  - Product use issue [Recovered/Resolved]

NARRATIVE: CASE EVENT DATE: 20211013
